FAERS Safety Report 24642700 (Version 2)
Quarter: 2025Q3

REPORT INFORMATION
  Report Type: Spontaneous
  Country: JP (occurrence: None)
  Receive Date: 20241120
  Receipt Date: 20250809
  Transmission Date: 20251021
  Serious: Yes (Other)
  Sender: ALEXION PHARMACEUTICALS
  Company Number: JP-ASTRAZENECA-240120662_012620_P_1

PATIENT
  Sex: Male

DRUGS (5)
  1. TRUQAP [Suspect]
     Active Substance: CAPIVASERTIB
     Indication: Prostate cancer
  2. TRUQAP [Suspect]
     Active Substance: CAPIVASERTIB
  3. TRUQAP [Suspect]
     Active Substance: CAPIVASERTIB
  4. TRUQAP [Suspect]
     Active Substance: CAPIVASERTIB
  5. DOCETAXEL [Suspect]
     Active Substance: DOCETAXEL
     Indication: Prostate cancer
     Route: 065

REACTIONS (4)
  - Off label use [Unknown]
  - Pyrexia [Unknown]
  - Eczema [Unknown]
  - Interstitial lung disease [Unknown]
